FAERS Safety Report 6340665-0 (Version None)
Quarter: 2009Q3

REPORT INFORMATION
  Report Type: 
  Country: None (occurrence: None)
  Receive Date: 20090902
  Receipt Date: 20090902
  Transmission Date: 20100115
  Serious: Yes (Hospitalization)
  Sender: FDA-Public Use
  Company Number: None

PATIENT
  Age: 41 Year
  Sex: Male
  Weight: 63.95 kg

DRUGS (10)
  1. SUNITINIB [Suspect]
  2. ERLOTINIB [Suspect]
  3. HALOPERIDOL [Concomitant]
  4. LORAZEPAM [Concomitant]
  5. METOPROLOL [Concomitant]
  6. METOPROLOL TARTRATE [Concomitant]
  7. ZYPREXA [Concomitant]
  8. OXYCODONE [Concomitant]
  9. PROCHLORPERAZINE -COMPAZINE- [Concomitant]
  10. RANITIDINE [Concomitant]

REACTIONS (5)
  - ABDOMINAL PAIN UPPER [None]
  - HYPERCALCAEMIA OF MALIGNANCY [None]
  - MALIGNANT NEOPLASM PROGRESSION [None]
  - PLEURITIC PAIN [None]
  - RENAL CELL CARCINOMA [None]
